FAERS Safety Report 23261746 (Version 1)
Quarter: 2023Q4

REPORT INFORMATION
  Report Type: Spontaneous
  Country: KR (occurrence: KR)
  Receive Date: 20231205
  Receipt Date: 20231205
  Transmission Date: 20240109
  Serious: Yes (Hospitalization, Other)
  Sender: FDA-Public Use
  Company Number: KR-Accord-393165

PATIENT
  Age: 29 Year
  Sex: Male
  Weight: 73 kg

DRUGS (4)
  1. DEXMEDETOMIDINE HYDROCHLORIDE [Suspect]
     Active Substance: DEXMEDETOMIDINE HYDROCHLORIDE
     Indication: Sedation
     Dosage: 1 UG/KG (73 UG) WAS PLANNED AT A RATE OF 6 UG/KG/H.
     Route: 042
  2. LIDOCAINE [Concomitant]
     Active Substance: LIDOCAINE
     Dosage: INJECTED 32 ML OF 1.5% LIDOCAINE
  3. EPINEPHRINE [Concomitant]
     Active Substance: EPINEPHRINE
     Dosage: 5 UG/ML
  4. DEXMEDETOMIDINE HYDROCHLORIDE [Suspect]
     Active Substance: DEXMEDETOMIDINE HYDROCHLORIDE
     Indication: Sedation
     Dosage: 0.9 UG/KG

REACTIONS (2)
  - Bradycardia [Recovered/Resolved]
  - Haemodynamic instability [Recovered/Resolved]
